FAERS Safety Report 7051188-8 (Version None)
Quarter: 2010Q4

REPORT INFORMATION
  Report Type: 
  Country: None (occurrence: None)
  Receive Date: 20101019
  Receipt Date: 20101007
  Transmission Date: 20110411
  Serious: No
  Sender: FDA-Public Use
  Company Number: PHHY2010US65839

PATIENT
  Sex: Female

DRUGS (2)
  1. TEKTURNA [Suspect]
  2. FISH OIL [Concomitant]

REACTIONS (1)
  - HYPOPHAGIA [None]
